FAERS Safety Report 6821289-5 (Version None)
Quarter: 2010Q3

REPORT INFORMATION
  Report Type: 
  Country: None (occurrence: None)
  Receive Date: 20100707
  Receipt Date: 20080627
  Transmission Date: 20110219
  Serious: No
  Sender: FDA-Public Use
  Company Number: US-PFIZER INC-2008048548

PATIENT
  Age: 56 Year
  Sex: Male
  Weight: 177.27 kg

DRUGS (2)
  1. ZOLOFT [Suspect]
     Dates: end: 20080101
  2. GENERAL NUTRIENTS [Suspect]

REACTIONS (4)
  - HEADACHE [None]
  - IRRITABILITY [None]
  - MEDICATION ERROR [None]
  - WITHDRAWAL SYNDROME [None]
